FAERS Safety Report 5815120-4 (Version None)
Quarter: 2008Q3

REPORT INFORMATION
  Report Type: 
  Country: None (occurrence: None)
  Receive Date: 20080718
  Receipt Date: 20080704
  Transmission Date: 20090109
  Serious: Yes (Hospitalization)
  Sender: FDA-Public Use
  Company Number: FR-MERCK-0807FRA00025

PATIENT
  Age: 70 Year
  Sex: Male

DRUGS (7)
  1. PRIMAXIN [Suspect]
     Indication: KLEBSIELLA SEPSIS
     Route: 042
     Dates: start: 20080306, end: 20080310
  2. PRIMAXIN [Suspect]
     Route: 042
     Dates: start: 20080313, end: 20080318
  3. AMIKACIN [Concomitant]
     Indication: KLEBSIELLA SEPSIS
     Route: 042
  4. CIPROFLOXACIN [Concomitant]
     Indication: KLEBSIELLA SEPSIS
     Route: 042
     Dates: end: 20080310
  5. NICARDIPINE HYDROCHLORIDE [Concomitant]
     Indication: HYPERTENSION
     Route: 048
  6. NICARDIPINE HYDROCHLORIDE [Concomitant]
     Route: 065
  7. HEPARIN CALCIUM [Concomitant]
     Indication: THROMBOSIS PROPHYLAXIS
     Route: 058
     Dates: end: 20080310

REACTIONS (3)
  - HAEMORRHAGE [None]
  - THROMBOCYTOPENIA [None]
  - THROMBOCYTOPENIC PURPURA [None]
